FAERS Safety Report 11621105 (Version 1)
Quarter: 2015Q4

REPORT INFORMATION
  Report Type: Spontaneous
  Country: US (occurrence: None)
  Receive Date: 20151012
  Receipt Date: 20151012
  Transmission Date: 20160304
  Serious: Yes (Other)
  Sender: FDA-Public Use
  Company Number: US-MDT-ADR-2015-01941

PATIENT
  Age: 48 Year
  Sex: Male

DRUGS (2)
  1. BACLOFEN INTRATHECAL [Suspect]
     Active Substance: BACLOFEN
  2. MORPHINE INTRATHECAL [Suspect]
     Active Substance: MORPHINE

REACTIONS (6)
  - Feeling abnormal [None]
  - Pain [None]
  - Constipation [None]
  - Post lumbar puncture syndrome [None]
  - Gastrointestinal disorder [None]
  - Adverse drug reaction [None]
